FAERS Safety Report 10048095 (Version 9)
Quarter: 2014Q3

REPORT INFORMATION
  Report Type: Spontaneous
  Country: US (occurrence: US)
  Receive Date: 20140331
  Receipt Date: 20140923
  Transmission Date: 20150326
  Serious: No
  Sender: FDA-Public Use
  Company Number: US-PFIZER INC-2014085570

PATIENT
  Age: 70 Year
  Sex: Male
  Weight: 105 kg

DRUGS (5)
  1. SUTENT [Suspect]
     Active Substance: SUNITINIB MALATE
     Indication: METASTATIC RENAL CELL CARCINOMA
     Dosage: 37.5 MG, DAILY CYCLIC
     Dates: end: 20140423
  2. NORVASC [Concomitant]
     Active Substance: AMLODIPINE BESYLATE
     Dosage: UNK
  3. SUTENT [Suspect]
     Active Substance: SUNITINIB MALATE
     Dosage: 25 MG, CYCLIC(DAILY FOR USUAL 28 DAYS ON AND 14 OFF)
     Dates: start: 20140512
  4. ZOFRAN [Concomitant]
     Active Substance: ONDANSETRON HYDROCHLORIDE
     Dosage: UNK
  5. SINEMET [Concomitant]
     Active Substance: CARBIDOPA\LEVODOPA
     Dosage: UNK

REACTIONS (29)
  - Dyspepsia [Recovered/Resolved]
  - Paranasal sinus hypersecretion [Not Recovered/Not Resolved]
  - Diarrhoea [Unknown]
  - Eructation [Not Recovered/Not Resolved]
  - Vomiting [Unknown]
  - Ear discomfort [Unknown]
  - Hyperhidrosis [Unknown]
  - Arthralgia [Unknown]
  - Sneezing [Not Recovered/Not Resolved]
  - Metastatic renal cell carcinoma [Unknown]
  - Nasopharyngitis [Unknown]
  - Skin discolouration [Unknown]
  - Hair colour changes [Unknown]
  - Dizziness [Unknown]
  - Nausea [Unknown]
  - Blood pressure systolic increased [Recovered/Resolved]
  - Contusion [Recovered/Resolved]
  - Disease progression [Unknown]
  - Memory impairment [Unknown]
  - Pruritus [Not Recovered/Not Resolved]
  - Rhinitis [Not Recovered/Not Resolved]
  - Cough [Not Recovered/Not Resolved]
  - Rash [Not Recovered/Not Resolved]
  - Epistaxis [Unknown]
  - Pain [Unknown]
  - Hypersensitivity [Unknown]
  - Anxiety [Unknown]
  - Abdominal distension [Unknown]
  - Fatigue [Unknown]

NARRATIVE: CASE EVENT DATE: 20140322
